FAERS Safety Report 5427494-7 (Version None)
Quarter: 2007Q3

REPORT INFORMATION
  Report Type: 
  Country: None (occurrence: None)
  Receive Date: 20070824
  Receipt Date: 20070824
  Transmission Date: 20080115
  Serious: Yes (Death)
  Sender: FDA-Public Use
  Company Number: None

PATIENT
  Age: 66 Year
  Sex: Female
  Weight: 56.6996 kg

DRUGS (1)
  1. QUINAPRIL HCL [Suspect]
     Indication: MUSCULAR WEAKNESS
     Dates: start: 20060401, end: 20060401

REACTIONS (3)
  - BRAIN DEATH [None]
  - DYSPNOEA [None]
  - VOMITING [None]
